FAERS Safety Report 15187938 (Version 1)
Quarter: 2018Q3

REPORT INFORMATION
  Report Type: Spontaneous
  Country: US (occurrence: US)
  Receive Date: 20180724
  Receipt Date: 20180724
  Transmission Date: 20181010
  Serious: Yes (Other)
  Sender: FDA-Public Use
  Company Number: US-AMGEN-USASP2018097309

PATIENT
  Age: 61 Year
  Sex: Female

DRUGS (1)
  1. ENBREL [Suspect]
     Active Substance: ETANERCEPT
     Indication: PSORIATIC ARTHROPATHY
     Dosage: 50 MG, QWK ON TUESDAYS
     Route: 065
     Dates: start: 2005

REACTIONS (4)
  - Seasonal allergy [Unknown]
  - Injection site pain [Unknown]
  - Sinusitis bacterial [Unknown]
  - Injection site induration [Unknown]

NARRATIVE: CASE EVENT DATE: 2018
